FAERS Safety Report 24308236 (Version 1)
Quarter: 2024Q3

REPORT INFORMATION
  Report Type: Spontaneous
  Country: US (occurrence: US)
  Receive Date: 20240911
  Receipt Date: 20240911
  Transmission Date: 20241017
  Serious: Yes (Other)
  Sender: DOMPE FARMACEUTICI
  Company Number: US-FARMAPROD-202409-3123

PATIENT
  Sex: Male

DRUGS (12)
  1. OXERVATE [Suspect]
     Active Substance: CENEGERMIN-BKBJ
     Indication: Neurotrophic keratopathy
     Route: 047
     Dates: start: 20240822
  2. TYLENOL [Concomitant]
     Active Substance: ACETAMINOPHEN
  3. ERYTHROMYCIN [Concomitant]
     Active Substance: ERYTHROMYCIN
  4. GATIFLOXACIN [Concomitant]
     Active Substance: GATIFLOXACIN
  5. PRED FORTE [Concomitant]
     Active Substance: PREDNISOLONE ACETATE
  6. TAMSULOSIN HYDROCHLORIDE [Concomitant]
     Active Substance: TAMSULOSIN HYDROCHLORIDE
  7. AMLODIPINE BESYLATE [Concomitant]
     Active Substance: AMLODIPINE BESYLATE
  8. CLOPIDOGREL [Concomitant]
     Active Substance: CLOPIDOGREL BISULFATE
  9. ATORVASTATIN CALCIUM [Concomitant]
     Active Substance: ATORVASTATIN CALCIUM
  10. LISINOPRIL [Concomitant]
     Active Substance: LISINOPRIL
  11. LEVETIRACETAM [Concomitant]
     Active Substance: LEVETIRACETAM
  12. METOPROLOL TARTRATE [Concomitant]
     Active Substance: METOPROLOL TARTRATE

REACTIONS (1)
  - Cerebrovascular accident [Unknown]
